FAERS Safety Report 9713277 (Version 1)
Quarter: 2013Q4

REPORT INFORMATION
  Report Type: Report from Study
  Country: DE (occurrence: DE)
  Receive Date: 20131126
  Receipt Date: 20131126
  Transmission Date: 20140711
  Serious: Yes (Other)
  Sender: FDA-Public Use
  Company Number: DE-SA-2013SA119823

PATIENT
  Age: 65 Year
  Sex: Female
  Weight: 75 kg

DRUGS (9)
  1. MULTAQ [Suspect]
     Indication: ATRIAL FIBRILLATION
     Route: 048
     Dates: start: 20130110, end: 20130819
  2. FLECAINIDE [Suspect]
     Indication: ATRIAL FIBRILLATION
     Route: 065
     Dates: start: 20130819, end: 201309
  3. BETA BLOCKING AGENTS [Concomitant]
     Dates: start: 2000
  4. VIT K ANTAGONISTS [Concomitant]
     Indication: THROMBOSIS PROPHYLAXIS
     Dates: start: 201106
  5. ENALAPRIL [Concomitant]
  6. HYDROCHLOROTHIAZIDE [Concomitant]
  7. AMLODIPINE [Concomitant]
  8. BELOC [Concomitant]
  9. RAMIPRIL [Concomitant]

REACTIONS (2)
  - Atrial fibrillation [Unknown]
  - Syncope [Unknown]
